FAERS Safety Report 4898628-8 (Version None)
Quarter: 2006Q1

REPORT INFORMATION
  Report Type: 
  Country: None (occurrence: None)
  Receive Date: 20060127
  Receipt Date: 20060111
  Transmission Date: 20060701
  Serious: Yes (Other)
  Sender: FDA-Public Use
  Company Number: US200601001757

PATIENT
  Age: 42 Year
  Sex: Male

DRUGS (3)
  1. STRATTERA [Suspect]
     Indication: DISTURBANCE IN ATTENTION
     Dosage: 140 MG, DAILY (1/D),
     Dates: start: 20050801
  2. RITALIN [Concomitant]
  3. WELLBUTRIN [Concomitant]

REACTIONS (8)
  - ABDOMINAL PAIN UPPER [None]
  - CHOLECYSTECTOMY [None]
  - DYSPEPSIA [None]
  - HEADACHE [None]
  - NAUSEA [None]
  - OVERDOSE [None]
  - SLEEP DISORDER [None]
  - URINARY HESITATION [None]
